FAERS Safety Report 7237570-4 (Version None)
Quarter: 2011Q1

REPORT INFORMATION
  Report Type: 
  Country: None (occurrence: None)
  Receive Date: 20110121
  Receipt Date: 20110118
  Transmission Date: 20110831
  Serious: Yes (Hospitalization)
  Sender: FDA-Public Use
  Company Number: US-MEDIMMUNE-MEDI-0012274

PATIENT

DRUGS (2)
  1. SYNAGIS [Suspect]
     Dates: start: 20101001, end: 20101001
  2. SYNAGIS [Suspect]
     Dates: start: 20101101, end: 20101201

REACTIONS (2)
  - APNOEA [None]
  - RASH [None]
